FAERS Safety Report 13945331 (Version 1)
Quarter: 2017Q3

REPORT INFORMATION
  Report Type: Spontaneous
  Country: US (occurrence: US)
  Receive Date: 20170907
  Receipt Date: 20170907
  Transmission Date: 20171128
  Serious: No
  Sender: FDA-Public Use
  Company Number: US-PFIZER INC-2017386399

PATIENT
  Sex: Female

DRUGS (1)
  1. ZITHROMAX [Suspect]
     Active Substance: AZITHROMYCIN DIHYDRATE
     Dosage: UNK (3X A WEEK UNTIL 6 MONTHS)

REACTIONS (5)
  - Alopecia [Unknown]
  - Product use issue [Unknown]
  - Weight increased [Unknown]
  - Fatigue [Unknown]
  - Reflexes abnormal [Unknown]
